FAERS Safety Report 20212478 (Version 8)
Quarter: 2022Q3

REPORT INFORMATION
  Report Type: Spontaneous
  Country: CA (occurrence: CA)
  Receive Date: 20211221
  Receipt Date: 20220801
  Transmission Date: 20221026
  Serious: Yes (Other)
  Sender: FDA-Public Use
  Company Number: CA-PFIZER INC-2021350477

PATIENT
  Age: 67 Year
  Sex: Male
  Weight: 92.8 kg

DRUGS (12)
  1. INLYTA [Suspect]
     Active Substance: AXITINIB
     Indication: Renal cell carcinoma
     Dosage: 3 TABLETS OF 1 MG, EVERY 12 HOURS
     Route: 048
     Dates: start: 20200415
  2. INLYTA [Suspect]
     Active Substance: AXITINIB
     Dosage: 3 TABLETS OF 1 MG, EVERY 12 HOURS/ 180 TABLET
     Route: 048
  3. INLYTA [Suspect]
     Active Substance: AXITINIB
     Dosage: UNK
     Dates: start: 20200415
  4. INLYTA [Suspect]
     Active Substance: AXITINIB
     Dosage: UNK
  5. DUTASTERIDE [Concomitant]
     Active Substance: DUTASTERIDE
     Dosage: 0.5 MG, 1X/DAY
     Route: 065
  6. KEYTRUDA [Concomitant]
     Active Substance: PEMBROLIZUMAB
     Dosage: 200 MG Q21D
     Route: 042
  7. LOPERAMIDE [Concomitant]
     Active Substance: LOPERAMIDE
     Indication: Diarrhoea
     Dosage: 4 MG (2 TABLETS) TO START, THEN 2 MG (1 TABLET), MAX 16 MG (8 TABLETS) PER DAY
     Route: 048
     Dates: start: 20210617
  8. LOSARTAN [Concomitant]
     Active Substance: LOSARTAN
     Dosage: 25 MG, 1X/DAY
     Route: 065
  9. METOCLOPRAMIDE [Concomitant]
     Active Substance: METOCLOPRAMIDE
     Indication: Nausea
     Dosage: 10 MG, EVERY 4 HOURS, AS NEEDED
     Route: 048
     Dates: start: 20210617
  10. METOCLOPRAMIDE [Concomitant]
     Active Substance: METOCLOPRAMIDE
     Indication: Vomiting
  11. PEMBROLIZUMAB [Concomitant]
     Active Substance: PEMBROLIZUMAB
     Dosage: UNK
     Route: 065
  12. SILODOSIN [Concomitant]
     Active Substance: SILODOSIN
     Dosage: 8 MG, 1X/DAY
     Route: 065

REACTIONS (7)
  - Surgery [Unknown]
  - Weight decreased [Unknown]
  - Body surface area decreased [Unknown]
  - Genitourinary symptom [Unknown]
  - Body surface area increased [Unknown]
  - Weight increased [Unknown]
  - Neoplasm progression [Unknown]

NARRATIVE: CASE EVENT DATE: 20210617
